FAERS Safety Report 5807096-0 (Version None)
Quarter: 2008Q3

REPORT INFORMATION
  Report Type: 
  Country: None (occurrence: None)
  Receive Date: 20080711
  Receipt Date: 20080627
  Transmission Date: 20090109
  Serious: Yes (Hospitalization)
  Sender: FDA-Public Use
  Company Number: FR-SANOFI-SYNTHELABO-A02200802007

PATIENT
  Sex: Male

DRUGS (6)
  1. TAHOR [Suspect]
     Indication: HYPERCHOLESTEROLAEMIA
     Route: 048
  2. PROSCAR [Suspect]
     Indication: PROSTATIC ADENOMA
     Route: 048
  3. COVERSYL [Suspect]
     Indication: HYPERTENSION
     Route: 048
  4. SKELID [Suspect]
     Indication: DRUG USE FOR UNKNOWN INDICATION
     Route: 048
  5. DEPAKENE [Suspect]
     Indication: EPILEPSY
     Route: 048
     Dates: start: 20080301, end: 20080403
  6. KARDEGIC [Suspect]
     Indication: PROPHYLAXIS
     Route: 048

REACTIONS (5)
  - ABASIA [None]
  - CONDITION AGGRAVATED [None]
  - DISABILITY [None]
  - FALL [None]
  - THROMBOCYTOPENIA [None]
